FAERS Safety Report 10174298 (Version 2)
Quarter: 2014Q2

REPORT INFORMATION
  Report Type: Report from Study
  Country: US (occurrence: US)
  Receive Date: 20140515
  Receipt Date: 20140515
  Transmission Date: 20141212
  Serious: Yes (Death)
  Sender: FDA-Public Use
  Company Number: US-EXELIXIS-CABO 14004088

PATIENT
  Sex: Female

DRUGS (1)
  1. CABOZANTINIB [Suspect]
     Indication: GALLBLADDER CANCER
     Dosage: 100 MG, QD
     Route: 048
     Dates: start: 20140209

REACTIONS (5)
  - Death [Fatal]
  - Nausea [Unknown]
  - Constipation [Unknown]
  - Diarrhoea [Unknown]
  - Off label use [Unknown]
